FAERS Safety Report 5988553-3 (Version None)
Quarter: 2008Q4

REPORT INFORMATION
  Report Type: 
  Country: None (occurrence: None)
  Receive Date: 20081210
  Receipt Date: 20080407
  Transmission Date: 20090506
  Serious: No
  Sender: FDA-Public Use
  Company Number: US-BAYER-200811525BCC

PATIENT
  Age: 60 Year
  Sex: Female
  Weight: 88 kg

DRUGS (1)
  1. ALEVE [Suspect]
     Indication: ANALGESIA
     Dosage: AS USED: 1320 MG  UNIT DOSE: 220 MG
     Route: 048
     Dates: start: 20080406

REACTIONS (1)
  - SOMNOLENCE [None]
